FAERS Safety Report 23368605 (Version 1)
Quarter: 2024Q1

REPORT INFORMATION
  Report Type: Spontaneous
  Country: MX (occurrence: MX)
  Receive Date: 20240105
  Receipt Date: 20240105
  Transmission Date: 20240409
  Serious: Yes (Other)
  Sender: FDA-Public Use
  Company Number: MX-SANDOZ-SDZ2023MX074384

PATIENT
  Age: 66 Year
  Sex: Male

DRUGS (3)
  1. CEFTRIAXONE SODIUM [Suspect]
     Active Substance: CEFTRIAXONE SODIUM
     Dosage: UNK
     Route: 065
  2. CEFTRIAXONE SODIUM [Suspect]
     Active Substance: CEFTRIAXONE SODIUM
     Dosage: UNK
     Route: 065
  3. CEFTRIAXONE SODIUM [Suspect]
     Active Substance: CEFTRIAXONE SODIUM
     Indication: Nasopharyngitis
     Dosage: UNK
     Route: 065
     Dates: start: 20231218, end: 20231218

REACTIONS (6)
  - Cerebrovascular accident [Unknown]
  - Chest pain [Unknown]
  - Vertigo [Unknown]
  - Pharyngeal swelling [Unknown]
  - Productive cough [Unknown]
  - Dizziness [Unknown]

NARRATIVE: CASE EVENT DATE: 20231218
